FAERS Safety Report 17106150 (Version 1)
Quarter: 2019Q4

REPORT INFORMATION
  Report Type: Spontaneous
  Country: US (occurrence: US)
  Receive Date: 20191203
  Receipt Date: 20191203
  Transmission Date: 20200122
  Serious: Yes (Other)
  Sender: FDA-Public Use
  Company Number: US-ABBVIE-19K-163-3166308-00

PATIENT
  Sex: Male

DRUGS (2)
  1. IMBRUVICA [Suspect]
     Active Substance: IBRUTINIB
     Indication: MANTLE CELL LYMPHOMA
     Dosage: 280 MG, QD
     Route: 048
     Dates: start: 201911
  2. IMBRUVICA [Suspect]
     Active Substance: IBRUTINIB
     Indication: MANTLE CELL LYMPHOMA
     Route: 048
     Dates: start: 201606

REACTIONS (8)
  - Contusion [Unknown]
  - Weight decreased [Unknown]
  - Blood blister [Recovering/Resolving]
  - Blood count abnormal [Recovered/Resolved]
  - Haemorrhage [Recovered/Resolved]
  - Incorrect dose administered [Unknown]
  - Skin exfoliation [Recovering/Resolving]
  - Platelet count decreased [Recovered/Resolved]
